FAERS Safety Report 19144784 (Version 1)
Quarter: 2021Q2

REPORT INFORMATION
  Report Type: Spontaneous
  Country: US (occurrence: US)
  Receive Date: 20210416
  Receipt Date: 20210416
  Transmission Date: 20210717
  Serious: Yes (Hospitalization)
  Sender: FDA-Public Use
  Company Number: None

PATIENT
  Age: 67 Year
  Sex: Female
  Weight: 120.7 kg

DRUGS (3)
  1. 5?FLUOROURACIL (5?FU) [Concomitant]
     Active Substance: FLUOROURACIL
  2. ELOXATIN [Concomitant]
     Active Substance: OXALIPLATIN
  3. ASPIRIN. [Suspect]
     Active Substance: ASPIRIN

REACTIONS (6)
  - Tremor [None]
  - Back pain [None]
  - Dysarthria [None]
  - Arthralgia [None]
  - Asthenia [None]
  - Metastatic neoplasm [None]

NARRATIVE: CASE EVENT DATE: 20210326
